FAERS Safety Report 5645773-5 (Version None)
Quarter: 2008Q1

REPORT INFORMATION
  Report Type: 
  Country: None (occurrence: None)
  Receive Date: 20080229
  Receipt Date: 20080214
  Transmission Date: 20080703
  Serious: Yes (Other)
  Sender: FDA-Public Use
  Company Number: NL-PFIZER INC-2007107946

PATIENT
  Sex: Male
  Weight: 85 kg

DRUGS (4)
  1. LYRICA [Suspect]
     Indication: NEURALGIA
     Route: 048
  2. LOSEC I.V. [Concomitant]
  3. ACENOCOUMAROL [Concomitant]
  4. DIAZEPAM [Concomitant]

REACTIONS (1)
  - ATRIAL FIBRILLATION [None]
